APPROVED DRUG PRODUCT: DONEPEZIL HYDROCHLORIDE
Active Ingredient: DONEPEZIL HYDROCHLORIDE
Strength: 23MG
Dosage Form/Route: TABLET;ORAL
Application: A202656 | Product #001
Applicant: RISING PHARMA HOLDING INC
Approved: Oct 22, 2015 | RLD: No | RS: No | Type: DISCN